FAERS Safety Report 20111221 (Version 1)
Quarter: 2021Q4

REPORT INFORMATION
  Report Type: Other
  Country: CA (occurrence: CA)
  Receive Date: 20211125
  Receipt Date: 20211125
  Transmission Date: 20220303
  Serious: Yes (Death, Life-Threatening, Hospitalization, Other)
  Sender: FDA-Public Use
  Company Number: CA-CELLTRION INC.-2021CA015825

PATIENT

DRUGS (12)
  1. RITUXIMAB [Suspect]
     Active Substance: RITUXIMAB
     Indication: Rheumatoid arthritis
     Dosage: 1000 MILLIGRAM
     Route: 042
  2. MELOXICAM [Suspect]
     Active Substance: MELOXICAM
     Indication: Rheumatoid arthritis
     Route: 065
  3. TOCILIZUMAB [Suspect]
     Active Substance: TOCILIZUMAB
     Indication: Rheumatoid arthritis
     Dosage: 784 MG, 1 EVERY 1 MONTHS
     Route: 042
  4. TOCILIZUMAB [Suspect]
     Active Substance: TOCILIZUMAB
     Indication: Rheumatoid arthritis
     Dosage: 784 MG, 1 EVERY 1 MONTHS
     Route: 042
  5. ALLOPURINOL [Concomitant]
     Active Substance: ALLOPURINOL
  6. BENADRYL [Concomitant]
     Active Substance: DIPHENHYDRAMINE HYDROCHLORIDE
     Dosage: 50 MG
     Route: 048
  7. FOLIC ACID [Concomitant]
     Active Substance: FOLIC ACID
  8. METHOTREXATE [Concomitant]
     Active Substance: METHOTREXATE
     Route: 058
  9. METHYLPREDNISOLONE SODIUM SUCCINATE [Concomitant]
     Active Substance: METHYLPREDNISOLONE SODIUM SUCCINATE
     Dosage: 100 MG
     Route: 042
  10. PREDNISONE [Concomitant]
     Active Substance: PREDNISONE
  11. RISEDRONATE SODIUM [Concomitant]
     Active Substance: RISEDRONATE SODIUM
  12. TYLENOL [Concomitant]
     Active Substance: ACETAMINOPHEN
     Dosage: 650 MG
     Route: 048

REACTIONS (20)
  - Cartilage injury [Fatal]
  - Colon cancer [Fatal]
  - Gait disturbance [Fatal]
  - Hepatic cancer [Fatal]
  - Oxygen saturation decreased [Fatal]
  - Pain in extremity [Fatal]
  - Pericardial effusion [Fatal]
  - Pleural effusion [Fatal]
  - Pulmonary oedema [Fatal]
  - Small intestinal obstruction [Fatal]
  - Throat lesion [Fatal]
  - Weight increased [Fatal]
  - Arthralgia [Fatal]
  - Cardiac failure [Fatal]
  - Cough [Fatal]
  - Gastrointestinal disorder [Fatal]
  - Hypertension [Fatal]
  - Infusion related reaction [Fatal]
  - Pain [Fatal]
  - Throat irritation [Fatal]
